FAERS Safety Report 11567753 (Version 1)
Quarter: 2015Q3

REPORT INFORMATION
  Report Type: Spontaneous
  Country: US (occurrence: None)
  Receive Date: 20150925
  Receipt Date: 20150925
  Transmission Date: 20151125
  Serious: Yes (Death, Hospitalization, Other)
  Sender: FDA-Public Use
  Company Number: US-ZYDUS-009094

PATIENT
  Age: 53 Year
  Sex: Male

DRUGS (7)
  1. OLMESARTAN [Concomitant]
     Active Substance: OLMESARTAN
  2. FAT EMULSION NOS [Suspect]
     Active Substance: EGG PHOSPHOLIPIDS\SAFFLOWER OIL\SOYBEAN OIL
     Indication: PRODUCT USED FOR UNKNOWN INDICATION
     Route: 042
  3. DILTIAZEM (DILTIAZEM) [Suspect]
     Active Substance: DILTIAZEM
     Indication: PRODUCT USED FOR UNKNOWN INDICATION
     Route: 048
  4. WARFARIN [Concomitant]
     Active Substance: WARFARIN
  5. PROPRANOLOL [Suspect]
     Active Substance: PROPRANOLOL\PROPRANOLOL HYDROCHLORIDE
     Indication: PRODUCT USED FOR UNKNOWN INDICATION
     Route: 048
  6. LORAZEPAM. [Concomitant]
     Active Substance: LORAZEPAM
  7. FLUOXETINE [Concomitant]
     Active Substance: FLUOXETINE\FLUOXETINE HYDROCHLORIDE

REACTIONS (11)
  - Hypotension [None]
  - Multi-organ failure [None]
  - Troponin increased [None]
  - Intentional overdose [None]
  - Oxygen saturation decreased [None]
  - Cardiac arrest [None]
  - Bradycardia [None]
  - Atrioventricular block complete [None]
  - Coronary artery stenosis [None]
  - Respiratory failure [None]
  - Myocardial ischaemia [None]
